FAERS Safety Report 5642516-6 (Version None)
Quarter: 2008Q1

REPORT INFORMATION
  Report Type: 
  Country: None (occurrence: None)
  Receive Date: 20080227
  Receipt Date: 20080227
  Transmission Date: 20080703
  Serious: Yes (Other)
  Sender: FDA-Public Use
  Company Number: None

PATIENT
  Age: 77 Year
  Sex: Female

DRUGS (12)
  1. FOSAMAX [Suspect]
     Indication: OSTEOPENIA
     Dosage: 70 MG/WEEK 5 1/2 YRS
     Dates: end: 20061001
  2. VYTORIN [Concomitant]
  3. GLUMETZA [Concomitant]
  4. GLIPIZIDE [Concomitant]
  5. INSULIN [Concomitant]
  6. BYETTA [Concomitant]
  7. ACTOS [Concomitant]
  8. SYNTHROID [Concomitant]
  9. ASPIRIN [Concomitant]
  10. CALTRATE [Concomitant]
  11. DULCOLAX [Concomitant]
  12. MICARDIS [Concomitant]

REACTIONS (1)
  - OSTEONECROSIS [None]
